FAERS Safety Report 6713578-X (Version None)
Quarter: 2010Q2

REPORT INFORMATION
  Report Type: 
  Country: None (occurrence: None)
  Receive Date: 20100504
  Receipt Date: 20100428
  Transmission Date: 20101027
  Serious: Yes (Other)
  Sender: FDA-Public Use
  Company Number: 573124

PATIENT
  Age: 13 Year
  Sex: Male
  Weight: 40 kg

DRUGS (57)
  1. VINCRISTINE SULFATE [Suspect]
     Indication: DRUG USE FOR UNKNOWN INDICATION
     Dosage: SEE IMAGE
     Route: 042
  2. VINCRISTINE SULFATE [Suspect]
     Indication: DRUG USE FOR UNKNOWN INDICATION
     Dosage: SEE IMAGE
     Route: 042
  3. VINCRISTINE SULFATE [Suspect]
     Indication: DRUG USE FOR UNKNOWN INDICATION
     Dosage: SEE IMAGE
     Route: 042
  4. VINCRISTINE SULFATE [Suspect]
     Indication: DRUG USE FOR UNKNOWN INDICATION
     Dosage: SEE IMAGE
     Route: 042
  5. ACETAMINOPHEN [Concomitant]
  6. ACYCLOVIR SODIUM INJECTION (ACICLOVIR) [Concomitant]
  7. (ALLOPURINOL) [Concomitant]
  8. (ALTEPLASE) [Concomitant]
  9. CALCIUM CARBONATE [Concomitant]
  10. CEFPROZIL [Concomitant]
  11. CEFTAZIDIME [Concomitant]
  12. CEFTRIAXONE SODIUM FOR INJECTION, POWDER (CEFTRIAXONE SODIUM) [Concomitant]
  13. (CLARITHROMYCIN) [Concomitant]
  14. CODEINE SULFATE [Concomitant]
  15. CYPROHEPTADINE HCL [Concomitant]
  16. CYTARABINE [Concomitant]
  17. (DEXAMETHASONE) [Concomitant]
  18. DIMENHYDRINATE [Concomitant]
  19. (DOCUSATE SODIUM) [Concomitant]
  20. DOXORUBICIN HYDROCHLORIDE FOR INJECTION USP (DOXORUBICIN HYDROCHLORIDE [Concomitant]
  21. FAMCICLOVIR [Concomitant]
  22. FASTURTEC [Concomitant]
  23. FENTANYL CITRATE INJ, USP CLI (FENTANYL CITRATE) [Concomitant]
  24. (FUROSEMIDE) [Concomitant]
  25. HYDROCORTISONE [Concomitant]
  26. (KETAMINE) [Concomitant]
  27. (L-ASPARAGINASE) [Concomitant]
  28. LEUCOVORIN CALCIUM [Concomitant]
  29. LIDOCAINE HCL INJ, USP (LIDOCAINE HYDROCHLORIDE) [Concomitant]
  30. LORAZEPAM [Concomitant]
  31. MAGNESIUM SULFATE [Concomitant]
  32. (MELATONIN) [Concomitant]
  33. MERCAPTOPURINE [Concomitant]
  34. METHOTREXATE [Concomitant]
  35. METHYLPREDNISOLONE 4MG TAB [Concomitant]
  36. METOCLOPRAMIDE HYDROCHLORIDE [Concomitant]
  37. MIDAZOLAM HCL [Concomitant]
  38. (MINERAL OIL EMULSION) [Concomitant]
  39. MORPHINE SULFATE INJ, USP (MORPHINE SULFATE) [Concomitant]
  40. (NOVO-RANIDINE) [Concomitant]
  41. NYSTATIN [Concomitant]
  42. (OMEPRAZOLE) [Concomitant]
  43. ONDANSETRON [Concomitant]
  44. PAMIDRONATE DISODIUM [Concomitant]
  45. PENTAMIDINE ISETIONATE FOR INJ., BP (PENTAMIDINE ISETHIONATE) [Concomitant]
  46. PHYTONADIONE [Concomitant]
  47. POTASSIUM CHLORIDE FOR INJ, USP (POTASSIUM CHLORIDE) [Concomitant]
  48. PREDNISONE [Concomitant]
  49. (SALBUTAMOL) [Concomitant]
  50. SODIUM POLYSTYRENE SULFONATE [Concomitant]
  51. SULFAMETHOXAZOLE AND TRIMETHOPRIM [Concomitant]
  52. TAMIFLU [Concomitant]
  53. (TIMENTIN /00703201/) [Concomitant]
  54. TOBRAMYCIN [Concomitant]
  55. VANCOMYCIN HCL INJ (VANCOMYCIN HYDROCHLORIDE) [Concomitant]
  56. (ZINECARD /01200102/) [Concomitant]
  57. ONCASPAR [Concomitant]

REACTIONS (7)
  - ARTHRALGIA [None]
  - BURNING SENSATION [None]
  - MUSCLE SPASMS [None]
  - MUSCULAR WEAKNESS [None]
  - NEUROPATHY PERIPHERAL [None]
  - PAIN IN EXTREMITY [None]
  - PARAESTHESIA [None]
